FAERS Safety Report 9578385 (Version 1)
Quarter: 2013Q4

REPORT INFORMATION
  Report Type: Spontaneous
  Country: US (occurrence: US)
  Receive Date: 20131001
  Receipt Date: 20131001
  Transmission Date: 20140711
  Serious: No
  Sender: FDA-Public Use
  Company Number: US-AMGEN-USASP2013012922

PATIENT
  Age: 46 Year
  Sex: Female
  Weight: 34.92 kg

DRUGS (7)
  1. ENBREL [Suspect]
     Indication: PRODUCT USED FOR UNKNOWN INDICATION
     Dosage: 50 MG, QWK
     Route: 058
  2. AUGMENTIN                          /00756801/ [Concomitant]
     Dosage: 250 MG, UNK
  3. NUVIGIL [Concomitant]
     Dosage: 150 MG, UNK
  4. LORAZEPAM [Concomitant]
     Dosage: 0.5 MG, UNK
  5. LORTAB                             /00607101/ [Concomitant]
     Dosage: UNK, 2.5-500
  6. SAM-E [Concomitant]
     Dosage: 200 MG, UNK
  7. CELEXA                             /00582602/ [Concomitant]
     Dosage: 10 MG, UNK

REACTIONS (1)
  - Sinusitis [Unknown]
